FAERS Safety Report 5020945-1 (Version None)
Quarter: 2006Q2

REPORT INFORMATION
  Report Type: 
  Country: None (occurrence: None)
  Receive Date: 20060608
  Receipt Date: 20060602
  Transmission Date: 20061013
  Serious: Yes (Other)
  Sender: FDA-Public Use
  Company Number: 2006UW10655

PATIENT
  Age: 44 Year
  Sex: Male
  Weight: 68 kg

DRUGS (4)
  1. SEROQUEL [Suspect]
     Indication: SCHIZOAFFECTIVE DISORDER
     Dosage: 700 MG HS AND 200 MG DURING THE DAY
     Route: 048
     Dates: start: 20040101
  2. TRAZODONE HCL [Concomitant]
  3. RISPERDAL [Concomitant]
  4. COGENTIN [Concomitant]

REACTIONS (3)
  - APPENDICECTOMY [None]
  - REFLUX OESOPHAGITIS [None]
  - STOMACH DISCOMFORT [None]
